FAERS Safety Report 5708558-7 (Version None)
Quarter: 2008Q2

REPORT INFORMATION
  Report Type: 
  Country: None (occurrence: None)
  Receive Date: 20080414
  Receipt Date: 20080414
  Transmission Date: 20081010
  Serious: Yes (Hospitalization)
  Sender: FDA-Public Use
  Company Number: None

PATIENT
  Age: 65 Year
  Sex: Male
  Weight: 90.7194 kg

DRUGS (3)
  1. GENTAMICIN [Suspect]
     Indication: WOUND INFECTION
     Dosage: 180 MG Q 24 HRS IV
     Route: 042
     Dates: start: 20080314, end: 20080317
  2. LASIX [Concomitant]
  3. LISINOPRIL [Concomitant]

REACTIONS (3)
  - BLOOD CREATININE INCREASED [None]
  - BLOOD UREA INCREASED [None]
  - HAEMODIALYSIS [None]
